FAERS Safety Report 9162591 (Version 2)
Quarter: 2013Q2

REPORT INFORMATION
  Report Type: Spontaneous
  Country: GB (occurrence: GB)
  Receive Date: 20130314
  Receipt Date: 20130409
  Transmission Date: 20140414
  Serious: Yes (Hospitalization)
  Sender: FDA-Public Use
  Company Number: GB-PFIZER INC-2013086249

PATIENT
  Age: 30 Year
  Sex: Male

DRUGS (2)
  1. IBUPROFEN [Suspect]
     Indication: BACK PAIN
     Dosage: 1200 MG, 4X/DAY
     Route: 048
     Dates: start: 20121119, end: 20130212
  2. IBUPROFEN [Suspect]
     Dosage: 400 MG, UNK
     Route: 048
     Dates: start: 20130213, end: 20130215

REACTIONS (2)
  - Overdose [Unknown]
  - Gastric ulcer haemorrhage [Recovering/Resolving]
